FAERS Safety Report 23869770 (Version 1)
Quarter: 2024Q2

REPORT INFORMATION
  Report Type: Report from Study
  Country: US (occurrence: US)
  Receive Date: 20240517
  Receipt Date: 20240517
  Transmission Date: 20240716
  Serious: Yes (Hospitalization, Other)
  Sender: FDA-Public Use
  Company Number: US-ELI_LILLY_AND_COMPANY-US202405002945

PATIENT
  Age: 66 Year
  Sex: Female

DRUGS (1)
  1. FORTEO [Suspect]
     Active Substance: TERIPARATIDE
     Indication: Osteoporosis
     Dosage: 20 UG, DAILY
     Route: 058

REACTIONS (6)
  - Diabetic ketoacidosis [Unknown]
  - Bone pain [Unknown]
  - Haemorrhoids [Unknown]
  - Limb discomfort [Unknown]
  - Taste disorder [Unknown]
  - Hyperhidrosis [Unknown]
